FAERS Safety Report 25331253 (Version 1)
Quarter: 2025Q2

REPORT INFORMATION
  Report Type: Spontaneous
  Country: CA (occurrence: CA)
  Receive Date: 20250519
  Receipt Date: 20250519
  Transmission Date: 20250717
  Serious: Yes (Other)
  Sender: PFIZER
  Company Number: CA-PFIZER INC-202500043623

PATIENT
  Age: 52 Year
  Sex: Female

DRUGS (3)
  1. RUXIENCE [Suspect]
     Active Substance: RITUXIMAB-PVVR
     Indication: Rheumatoid arthritis
     Route: 042
     Dates: start: 20250214, end: 20250214
  2. RUXIENCE [Suspect]
     Active Substance: RITUXIMAB-PVVR
     Route: 042
     Dates: start: 20250514, end: 20250514
  3. PREDNISONE [Concomitant]
     Active Substance: PREDNISONE

REACTIONS (9)
  - Syncope [Recovering/Resolving]
  - Nephrolithiasis [Recovering/Resolving]
  - Stomatitis [Recovered/Resolved]
  - Glossodynia [Recovered/Resolved]
  - Rash [Recovered/Resolved]
  - Headache [Recovered/Resolved]
  - Nasopharyngitis [Unknown]
  - Flank pain [Recovering/Resolving]
  - Condition aggravated [Recovering/Resolving]

NARRATIVE: CASE EVENT DATE: 20250101
